FAERS Safety Report 25579613 (Version 1)
Quarter: 2025Q3

REPORT INFORMATION
  Report Type: Spontaneous
  Country: US (occurrence: US)
  Receive Date: 20250718
  Receipt Date: 20250718
  Transmission Date: 20251021
  Serious: Yes (Death, Other)
  Sender: PURDUE
  Company Number: US-PURDUE-USA-2025-0319036

PATIENT
  Age: 48 Year
  Sex: Female

DRUGS (3)
  1. DEXTROAMPHETAMINE SACCHARATE, AMPHETAMINE ASPARTATE, DEXTROAMPHETAMINE [Suspect]
     Active Substance: AMPHETAMINE ASPARTATE\AMPHETAMINE SULFATE\DEXTROAMPHETAMINE SACCHARATE\DEXTROAMPHETAMINE SULFATE
     Indication: Product used for unknown indication
     Route: 048
  2. BUPROPION [Suspect]
     Active Substance: BUPROPION
     Indication: Product used for unknown indication
     Route: 048
  3. PROPRANOLOL [Suspect]
     Active Substance: PROPRANOLOL HYDROCHLORIDE
     Indication: Product used for unknown indication
     Route: 065

REACTIONS (10)
  - Cardiogenic shock [Fatal]
  - Electrocardiogram QRS complex prolonged [Fatal]
  - Ventricular tachycardia [Fatal]
  - Intentional self-injury [Fatal]
  - Cardiotoxicity [Fatal]
  - Overdose [Fatal]
  - Metabolic acidosis [Unknown]
  - Seizure [Recovered/Resolved]
  - Drug screen positive [Unknown]
  - Hypotension [Unknown]
